FAERS Safety Report 25237377 (Version 2)
Quarter: 2025Q2

REPORT INFORMATION
  Report Type: Spontaneous
  Country: US (occurrence: US)
  Receive Date: 20250425
  Receipt Date: 20250502
  Transmission Date: 20250717
  Serious: Yes (Other)
  Sender: DAIICHI
  Company Number: US-DSJP-DS-2025-137961-US

PATIENT
  Age: 56 Year
  Sex: Male

DRUGS (6)
  1. ENHERTU [Suspect]
     Active Substance: FAM-TRASTUZUMAB DERUXTECAN-NXKI
     Indication: Lung neoplasm malignant
     Dosage: 5.5 MG/KG, ONCE EVERY 3 WK
     Route: 065
     Dates: start: 20241126, end: 20241126
  2. ENHERTU [Suspect]
     Active Substance: FAM-TRASTUZUMAB DERUXTECAN-NXKI
     Dosage: UNK UNK, ONCE EVERY 3 WK
     Route: 065
     Dates: start: 20241218, end: 20241218
  3. ENHERTU [Suspect]
     Active Substance: FAM-TRASTUZUMAB DERUXTECAN-NXKI
     Dosage: UNK, ONCE EVERY 3 WK
     Route: 065
     Dates: start: 20250108, end: 20250108
  4. ENHERTU [Suspect]
     Active Substance: FAM-TRASTUZUMAB DERUXTECAN-NXKI
     Dosage: UNK, ONCE EVERY 3 WK
     Route: 065
     Dates: start: 20250129, end: 20250129
  5. ENHERTU [Suspect]
     Active Substance: FAM-TRASTUZUMAB DERUXTECAN-NXKI
     Dosage: UNK, ONCE EVERY 3 WK
     Route: 065
     Dates: start: 20250219, end: 20250219
  6. ENHERTU [Suspect]
     Active Substance: FAM-TRASTUZUMAB DERUXTECAN-NXKI
     Dosage: UNK, ONCE EVERY 3 WK
     Route: 065
     Dates: start: 20250312, end: 20250312

REACTIONS (1)
  - Cardiac failure [Unknown]
